FAERS Safety Report 16682079 (Version 1)
Quarter: 2019Q3

REPORT INFORMATION
  Report Type: Spontaneous
  Country: US (occurrence: US)
  Receive Date: 20190622
  Receipt Date: 20190622
  Transmission Date: 20191004
  Serious: Yes (Hospitalization)
  Sender: FDA-Public Use
  Company Number: None

PATIENT
  Age: 57 Year
  Sex: Female
  Weight: 74.5 kg

DRUGS (1)
  1. 5-FLUOROURACIL (5-FU) [Suspect]
     Active Substance: FLUOROURACIL
     Dates: end: 20190225

REACTIONS (9)
  - Electrocardiogram QT prolonged [None]
  - Blood alkaline phosphatase increased [None]
  - Asthenia [None]
  - Renal failure [None]
  - Dizziness [None]
  - Hyponatraemia [None]
  - Leukocytosis [None]
  - Diplopia [None]
  - Dehydration [None]

NARRATIVE: CASE EVENT DATE: 20190520
